FAERS Safety Report 5214115-1 (Version None)
Quarter: 2007Q1

REPORT INFORMATION
  Report Type: 
  Country: None (occurrence: None)
  Receive Date: 20070117
  Receipt Date: 20070102
  Transmission Date: 20070707
  Serious: Yes (Hospitalization)
  Sender: FDA-Public Use
  Company Number: 2007BI000167

PATIENT
  Age: 41 Year
  Sex: Female

DRUGS (1)
  1. AVONEX [Suspect]
     Indication: MULTIPLE SCLEROSIS
     Dosage: 30 UG; QW; IM
     Route: 030
     Dates: start: 20040521

REACTIONS (6)
  - ABSCESS [None]
  - BLOOD DISORDER [None]
  - BRONCHITIS [None]
  - DRUG HYPERSENSITIVITY [None]
  - INFECTION [None]
  - PARALYSIS [None]
